FAERS Safety Report 14858041 (Version 1)
Quarter: 2018Q2

REPORT INFORMATION
  Report Type: Spontaneous
  Country: FR (occurrence: FR)
  Receive Date: 20180508
  Receipt Date: 20180508
  Transmission Date: 20180711
  Serious: Yes (Other)
  Sender: FDA-Public Use
  Company Number: FR-MERCK KGAA-2047349

PATIENT
  Age: 62 Year
  Sex: Female

DRUGS (1)
  1. NOVOTHYROX [Suspect]
     Active Substance: LEVOTHYROXINE SODIUM
     Indication: PRODUCT USED FOR UNKNOWN INDICATION

REACTIONS (26)
  - Pulmonary embolism [None]
  - Decreased appetite [None]
  - Weight decreased [None]
  - Insomnia [None]
  - Impaired work ability [None]
  - Mean cell haemoglobin increased [None]
  - Alpha 2 globulin increased [None]
  - Myalgia [None]
  - Irritability [None]
  - Depression [None]
  - Social avoidant behaviour [None]
  - Hyperhidrosis [None]
  - C-reactive protein increased [None]
  - Blood thyroid stimulating hormone increased [None]
  - Gamma-glutamyltransferase increased [None]
  - Headache [None]
  - Grip strength decreased [None]
  - White blood cell count increased [None]
  - Blood glucose increased [None]
  - Fatigue [None]
  - Beta 2 microglobulin increased [None]
  - Arrhythmia [None]
  - Pain in extremity [None]
  - Libido decreased [None]
  - Neutrophil count increased [None]
  - Alopecia [None]

NARRATIVE: CASE EVENT DATE: 20170321
